FAERS Safety Report 15187797 (Version 1)
Quarter: 2018Q3

REPORT INFORMATION
  Report Type: Spontaneous
  Country: US (occurrence: US)
  Receive Date: 20180724
  Receipt Date: 20180724
  Transmission Date: 20181010
  Serious: No
  Sender: FDA-Public Use
  Company Number: US-TEVA-2018-US-931699

PATIENT
  Sex: Female

DRUGS (1)
  1. COPAXONE [Suspect]
     Active Substance: GLATIRAMER ACETATE
     Route: 065

REACTIONS (10)
  - Drug ineffective [Unknown]
  - Bruxism [Recovered/Resolved]
  - Job dissatisfaction [Unknown]
  - Palpitations [Recovered/Resolved]
  - Anxiety [Unknown]
  - Hypoaesthesia [Unknown]
  - Scar [Unknown]
  - Muscle tightness [Recovered/Resolved]
  - Gait disturbance [Recovered/Resolved]
  - Stress [Unknown]

NARRATIVE: CASE EVENT DATE: 2012
